FAERS Safety Report 15560087 (Version 1)
Quarter: 2018Q4

REPORT INFORMATION
  Report Type: Spontaneous
  Country: US (occurrence: US)
  Receive Date: 20181023
  Receipt Date: 20181023
  Transmission Date: 20190205
  Serious: Yes (Hospitalization)
  Sender: FDA-Public Use
  Company Number: None

PATIENT
  Age: 64 Year
  Sex: Female
  Weight: 131.4 kg

DRUGS (12)
  1. BUMEX [Concomitant]
     Active Substance: BUMETANIDE
  2. ECOTRIN [Concomitant]
     Active Substance: ASPIRIN
  3. VITD3 [Concomitant]
  4. ACTOS [Suspect]
     Active Substance: PIOGLITAZONE HYDROCHLORIDE
  5. METFORMIN 1000 [Suspect]
     Active Substance: METFORMIN HYDROCHLORIDE
     Indication: DIABETES MELLITUS
     Dosage: CHRONIC?
     Route: 048
  6. CARDURA [Concomitant]
     Active Substance: DOXAZOSIN MESYLATE
  7. LIPITOR [Concomitant]
     Active Substance: ATORVASTATIN CALCIUM
  8. GLIMEPIRIDE. [Suspect]
     Active Substance: GLIMEPIRIDE
     Indication: DIABETES MELLITUS
     Dosage: 2MG QAM NIGHTLY PO?1MG NIGHTLY PO ?CHRONIC
  9. ATACAND [Concomitant]
     Active Substance: CANDESARTAN CILEXETIL
  10. ASA [Concomitant]
     Active Substance: ASPIRIN
  11. LOPRESSOR [Concomitant]
     Active Substance: METOPROLOL TARTRATE
  12. PROCARDIA XL [Concomitant]
     Active Substance: NIFEDIPINE

REACTIONS (1)
  - Hypoglycaemia [None]

NARRATIVE: CASE EVENT DATE: 20180919
